FAERS Safety Report 5949187-X (Version None)
Quarter: 2008Q4

REPORT INFORMATION
  Report Type: 
  Country: None (occurrence: None)
  Receive Date: 20081111
  Receipt Date: 20081023
  Transmission Date: 20090506
  Serious: Yes (Death)
  Sender: FDA-Public Use
  Company Number: SI-ABBOTT-08P-261-0486623-00

PATIENT
  Age: 39 Year
  Sex: Male
  Weight: 58 kg

DRUGS (2)
  1. KALETRA [Suspect]
     Indication: HIV INFECTION
     Dosage: 800/200MG; 400/100MG TWICE DAILY FROM 200/50 STRENGTH
     Route: 048
     Dates: start: 20080811, end: 20080922
  2. ABC/3TC [Concomitant]
     Indication: DRUG USE FOR UNKNOWN INDICATION

REACTIONS (2)
  - ENCEPHALITIS CYTOMEGALOVIRUS [None]
  - HEMIPARESIS [None]
